FAERS Safety Report 12668175 (Version 26)
Quarter: 2019Q3

REPORT INFORMATION
  Report Type: Report from Study
  Country: JP (occurrence: JP)
  Receive Date: 20160819
  Receipt Date: 20190920
  Transmission Date: 20191004
  Serious: Yes (Hospitalization, Other)
  Sender: FDA-Public Use
  Company Number: JP-AMGEN-JPNCT2016085356

PATIENT
  Age: 64 Year
  Sex: Female
  Weight: 53.5 kg

DRUGS (53)
  1. PANITUMUMAB [Suspect]
     Active Substance: PANITUMUMAB
     Dosage: 320 MILLIGRAM, Q2WK
     Route: 041
     Dates: start: 20160329, end: 20160329
  2. PANITUMUMAB [Suspect]
     Active Substance: PANITUMUMAB
     Dosage: 320 MILLIGRAM, Q2WK
     Route: 041
     Dates: start: 20190205, end: 20190205
  3. CALCIUM LEVOFOLINATE [Suspect]
     Active Substance: LEVOLEUCOVORIN CALCIUM
     Indication: COLON CANCER
     Dosage: 300 MILLIGRAM, Q2WEEKS
     Route: 041
     Dates: start: 20160224, end: 20160224
  4. CALCIUM LEVOFOLINATE [Suspect]
     Active Substance: LEVOLEUCOVORIN CALCIUM
     Dosage: 300 MILLIGRAM, Q2WEEKS
     Route: 041
     Dates: start: 20160426, end: 20160720
  5. CALCIUM LEVOFOLINATE [Suspect]
     Active Substance: LEVOLEUCOVORIN CALCIUM
     Dosage: 300 MILLIGRAM, Q2WK
     Route: 041
     Dates: start: 20190627
  6. 5-FU [FLUOROURACIL] [Suspect]
     Active Substance: FLUOROURACIL
     Indication: COLON CANCER
     Dosage: 600 MILLIGRAM, Q2WK
     Route: 040
     Dates: start: 20160224, end: 20160224
  7. 5-FU [FLUOROURACIL] [Suspect]
     Active Substance: FLUOROURACIL
     Dosage: 300 MILLIGRAM, Q2WK
     Route: 040
     Dates: start: 20160329, end: 20160329
  8. 5-FU [FLUOROURACIL] [Suspect]
     Active Substance: FLUOROURACIL
     Dosage: 3000 MILLIGRAM/SQ. METER, Q2WK
     Route: 041
     Dates: start: 20160329, end: 20160329
  9. 5-FU [FLUOROURACIL] [Suspect]
     Active Substance: FLUOROURACIL
     Dosage: 2400 MILLIGRAM, Q2WK
     Route: 041
     Dates: start: 20171130, end: 20190319
  10. 5-FU [FLUOROURACIL] [Suspect]
     Active Substance: FLUOROURACIL
     Dosage: UNK
     Route: 040
     Dates: start: 20190716
  11. DEXART [Suspect]
     Active Substance: DEXAMETHASONE SODIUM PHOSPHATE
     Indication: PROPHYLAXIS OF NAUSEA AND VOMITING
     Dosage: 8.25 MILLIGRAM, Q2WEEKS
     Route: 041
     Dates: start: 20160224
  12. DECADRON [Suspect]
     Active Substance: DEXAMETHASONE
     Indication: PROPHYLAXIS OF NAUSEA AND VOMITING
     Dosage: 4 MILLIGRAM, Q2WK
     Route: 048
     Dates: start: 20160329
  13. ASPARA K [Concomitant]
     Active Substance: POTASSIUM ASPARTATE
     Indication: MINERAL SUPPLEMENTATION
     Dosage: 300 MILLIGRAM, TID
     Route: 048
     Dates: start: 20190716, end: 20190719
  14. PANITUMUMAB [Suspect]
     Active Substance: PANITUMUMAB
     Dosage: 3.8 MILLIGRAM/KILOGRAM, Q2WK
     Route: 041
     Dates: start: 20190319, end: 20190319
  15. CALCIUM LEVOFOLINATE [Suspect]
     Active Substance: LEVOLEUCOVORIN CALCIUM
     Dosage: 300 MILLIGRAM, Q2WK
     Route: 041
     Dates: start: 20190411, end: 20190627
  16. MINOCYCLINE HYDROCHLORIDE. [Concomitant]
     Active Substance: MINOCYCLINE HYDROCHLORIDE
     Indication: INFECTION PROPHYLAXIS
     Dosage: 100 MILLIGRAM
     Route: 048
     Dates: start: 20160225, end: 20190709
  17. LIXIANA [Concomitant]
     Active Substance: EDOXABAN TOSYLATE
     Indication: THROMBOSIS PROPHYLAXIS
     Dosage: 30 MILLIGRAM, QD
     Route: 048
     Dates: start: 20170201
  18. PANITUMUMAB [Suspect]
     Active Substance: PANITUMUMAB
     Dosage: 3 MILLIGRAM/KILOGRAM, Q2WK
     Route: 041
     Dates: start: 20190515, end: 20190627
  19. 5-FU [FLUOROURACIL] [Suspect]
     Active Substance: FLUOROURACIL
     Dosage: 2400 MILLIGRAM, Q2WK
     Route: 041
     Dates: start: 20190627
  20. CALONAL [Concomitant]
     Active Substance: ACETAMINOPHEN
     Dosage: 400 MILLIGRAM, QID
     Route: 048
     Dates: start: 20160224
  21. PANITUMUMAB [Suspect]
     Active Substance: PANITUMUMAB
     Indication: PRODUCT USED FOR UNKNOWN INDICATION
     Dosage: 320 MILLIGRAM, Q2WK
     Route: 041
     Dates: start: 20160224, end: 20160224
  22. PANITUMUMAB [Suspect]
     Active Substance: PANITUMUMAB
     Dosage: 320 MILLIGRAM, Q2WK
     Route: 041
     Dates: start: 20160907, end: 20160907
  23. CALCIUM LEVOFOLINATE [Suspect]
     Active Substance: LEVOLEUCOVORIN CALCIUM
     Dosage: 300 MILLIGRAM, Q2WEEKS
     Route: 041
     Dates: start: 20171130, end: 20190319
  24. TAKECAB [Concomitant]
     Active Substance: VONOPRAZAN FUMURATE
     Indication: PROPHYLAXIS
     Dosage: 10 MILLIGRAM, QD
     Route: 048
     Dates: start: 20161005
  25. MAGNESIUM OXIDE. [Concomitant]
     Active Substance: MAGNESIUM OXIDE
     Indication: CONSTIPATION
     Dosage: 330 MILLIGRAM, TID
     Route: 048
     Dates: start: 20161122
  26. PANITUMUMAB [Suspect]
     Active Substance: PANITUMUMAB
     Dosage: 320 MILLIGRAM, Q2WK
     Route: 041
     Dates: start: 20161019, end: 20161122
  27. OXALIPLATIN. [Suspect]
     Active Substance: OXALIPLATIN
     Indication: COLON CANCER
     Dosage: 120 MG, Q2WEEKS
     Route: 041
     Dates: start: 20160224, end: 20160224
  28. CALCIUM LEVOFOLINATE [Suspect]
     Active Substance: LEVOLEUCOVORIN CALCIUM
     Dosage: 300 MILLIGRAM, Q2WEEKS
     Route: 041
     Dates: start: 20190411, end: 20190627
  29. MINOCYCLINE HYDROCHLORIDE. [Concomitant]
     Active Substance: MINOCYCLINE HYDROCHLORIDE
     Dosage: 100 MILLIGRAM
     Route: 048
     Dates: start: 20190722
  30. OXALIPLATIN. [Suspect]
     Active Substance: OXALIPLATIN
     Dosage: 70 MILLIGRAM, Q2WEEKS
     Route: 041
     Dates: start: 20160907, end: 20170516
  31. 5-FU [FLUOROURACIL] [Suspect]
     Active Substance: FLUOROURACIL
     Dosage: 300 MILLIGRAM, Q2WK
     Route: 040
     Dates: start: 20160525, end: 20160608
  32. 5-FU [FLUOROURACIL] [Suspect]
     Active Substance: FLUOROURACIL
     Dosage: 2400 MILLIGRAM, Q2WK
     Route: 041
     Dates: start: 20160907, end: 20171114
  33. 5-FU [FLUOROURACIL] [Suspect]
     Active Substance: FLUOROURACIL
     Dosage: 2400 MILLIGRAM, Q2WK
     Route: 041
     Dates: start: 20190411
  34. DECADRON [Suspect]
     Active Substance: DEXAMETHASONE
     Dosage: 2 MILLIGRAM, Q2WK
     Route: 048
     Dates: start: 20160907
  35. SULPIRIDE [Concomitant]
     Active Substance: SULPIRIDE
     Indication: PROPHYLAXIS
     Dosage: 50 MILLIGRAM, BID
     Route: 048
     Dates: start: 20160308
  36. CRAVIT [Concomitant]
     Active Substance: LEVOFLOXACIN
     Indication: INFECTION PROPHYLAXIS
     Dosage: 500 MILLIGRAM, QD
     Route: 048
     Dates: start: 20190722
  37. PANITUMUMAB [Suspect]
     Active Substance: PANITUMUMAB
     Dosage: 320 MILLIGRAM, Q2WK
     Route: 041
     Dates: start: 20160426, end: 20160720
  38. PANITUMUMAB [Suspect]
     Active Substance: PANITUMUMAB
     Dosage: 3.8 MILLIGRAM/KILOGRAM, Q2WK
     Route: 041
     Dates: start: 20190411, end: 20190426
  39. OXALIPLATIN. [Suspect]
     Active Substance: OXALIPLATIN
     Dosage: 90 MILLIGRAM, Q2WEEKS
     Route: 041
     Dates: start: 20160329, end: 20160329
  40. OXALIPLATIN. [Suspect]
     Active Substance: OXALIPLATIN
     Dosage: 70 MILLIGRAM, Q2WEEKS
     Route: 041
     Dates: start: 20160426, end: 20160720
  41. CALCIUM LEVOFOLINATE [Suspect]
     Active Substance: LEVOLEUCOVORIN CALCIUM
     Dosage: 300 MILLIGRAM, Q2WEEKS
     Route: 041
     Dates: start: 20160329, end: 20160329
  42. 5-FU [FLUOROURACIL] [Suspect]
     Active Substance: FLUOROURACIL
     Dosage: 3600 MILLIGRAM, Q2WK
     Route: 041
     Dates: start: 20160224, end: 20160224
  43. 5-FU [FLUOROURACIL] [Suspect]
     Active Substance: FLUOROURACIL
     Dosage: 2400 MILLIGRAM, Q2WK
     Route: 041
     Dates: start: 20160426, end: 20160720
  44. 5-FU [FLUOROURACIL] [Suspect]
     Active Substance: FLUOROURACIL
     Dosage: 300 MILLIGRAM, Q2WK
     Route: 040
     Dates: start: 20161019, end: 20170801
  45. DEXART [Suspect]
     Active Substance: DEXAMETHASONE SODIUM PHOSPHATE
     Indication: PROPHYLAXIS OF NAUSEA AND VOMITING
     Dosage: 4.95 MILLIGRAM, Q2WEEKS
     Route: 041
     Dates: start: 20160907
  46. CALONAL [Concomitant]
     Active Substance: ACETAMINOPHEN
     Indication: PAIN
     Dosage: 500 MILLIGRAM
     Route: 048
     Dates: start: 20160219
  47. URSODEOXYCHOLIC ACID [Concomitant]
     Active Substance: URSODIOL
     Indication: HEPATIC FUNCTION ABNORMAL
     Dosage: 200 MILLIGRAM, TID
     Route: 048
     Dates: start: 20161102
  48. PANITUMUMAB [Suspect]
     Active Substance: PANITUMUMAB
     Dosage: 320 MILLIGRAM, Q2WK
     Route: 041
     Dates: start: 20170308, end: 20170308
  49. PANITUMUMAB [Suspect]
     Active Substance: PANITUMUMAB
     Dosage: 320 MILLIGRAM, Q2WK
     Route: 041
     Dates: start: 20170405, end: 20170704
  50. PANITUMUMAB [Suspect]
     Active Substance: PANITUMUMAB
     Dosage: 3 MILLIGRAM/KILOGRAM, Q2WK
     Route: 041
     Dates: start: 20190515, end: 20190627
  51. CALCIUM LEVOFOLINATE [Suspect]
     Active Substance: LEVOLEUCOVORIN CALCIUM
     Dosage: 300 MILLIGRAM, Q2WEEKS
     Route: 041
     Dates: start: 20160907, end: 20171114
  52. 5-FU [FLUOROURACIL] [Suspect]
     Active Substance: FLUOROURACIL
     Dosage: UNK
     Route: 041
     Dates: start: 20190716
  53. LOXOPROFEN SODIUM [Concomitant]
     Active Substance: LOXOPROFEN SODIUM
     Indication: PAIN
     Dosage: 60 MILLIGRAM, TID
     Route: 048
     Dates: start: 20160814

REACTIONS (28)
  - Blood alkaline phosphatase increased [Recovered/Resolved]
  - Groin pain [Recovered/Resolved]
  - Neutrophil count decreased [Recovered/Resolved]
  - Dysphonia [Recovered/Resolved]
  - Dry skin [Recovered/Resolved]
  - Hypomagnesaemia [Recovered/Resolved]
  - Erythema [Recovered/Resolved]
  - Malaise [Recovered/Resolved]
  - Stomatitis [Recovered/Resolved]
  - Pruritus [Recovered/Resolved]
  - Eye discharge [Recovered/Resolved]
  - Alanine aminotransferase increased [Recovered/Resolved]
  - Dysgeusia [Recovered/Resolved]
  - Palmar-plantar erythrodysaesthesia syndrome [Recovered/Resolved]
  - Constipation [Recovered/Resolved]
  - Spinal compression fracture [Recovering/Resolving]
  - Peripheral sensory neuropathy [Not Recovered/Not Resolved]
  - Weight increased [Unknown]
  - Insomnia [Recovered/Resolved]
  - Decreased appetite [Recovered/Resolved]
  - Angular cheilitis [Recovered/Resolved]
  - Oral herpes [Recovered/Resolved]
  - Haematuria [Recovered/Resolved]
  - Dermatitis acneiform [Recovered/Resolved]
  - Paronychia [Recovered/Resolved]
  - Constipation [Unknown]
  - Osteoporosis [Recovering/Resolving]
  - Pigmentation disorder [Recovered/Resolved]

NARRATIVE: CASE EVENT DATE: 20160808
